FAERS Safety Report 24879996 (Version 1)
Quarter: 2025Q1

REPORT INFORMATION
  Report Type: Spontaneous
  Country: US (occurrence: US)
  Receive Date: 20250123
  Receipt Date: 20250123
  Transmission Date: 20250409
  Serious: No
  Sender: PFIZER
  Company Number: US-PFIZER INC-202500015342

PATIENT
  Age: 53 Year
  Sex: Female

DRUGS (9)
  1. IBRANCE [Suspect]
     Active Substance: PALBOCICLIB
     Dates: start: 202201
  2. FASLODEX [Concomitant]
     Active Substance: FULVESTRANT
  3. LORATADINE [Concomitant]
     Active Substance: LORATADINE
  4. VITAMIN D3 [Concomitant]
     Active Substance: CHOLECALCIFEROL
  5. ZOLEDRONIC ACID [Concomitant]
     Active Substance: ZOLEDRONIC ACID
  6. VITAMIN B12 [Concomitant]
     Active Substance: CYANOCOBALAMIN
  7. BIOTIN [Concomitant]
     Active Substance: BIOTIN
  8. BROMFENAC SODIUM [Concomitant]
     Active Substance: BROMFENAC SODIUM
  9. LUPRON DEPOT [Concomitant]
     Active Substance: LEUPROLIDE ACETATE

REACTIONS (4)
  - Hot flush [Unknown]
  - Alopecia [Unknown]
  - Joint stiffness [Unknown]
  - Fatigue [Unknown]
